FAERS Safety Report 11427921 (Version 2)
Quarter: 2015Q4

REPORT INFORMATION
  Report Type: Spontaneous
  Country: JP (occurrence: JP)
  Receive Date: 20150828
  Receipt Date: 20151023
  Transmission Date: 20160304
  Serious: Yes (Other)
  Sender: FDA-Public Use
  Company Number: JP-AMGEN-JPNSP2015074620

PATIENT
  Age: 71 Year
  Sex: Male
  Weight: 54 kg

DRUGS (22)
  1. G-LASTA [Suspect]
     Active Substance: PEGFILGRASTIM
     Dosage: 3.6 MG, QD
     Route: 065
     Dates: start: 20150706, end: 20150706
  2. FEBURIC [Concomitant]
     Active Substance: FEBUXOSTAT
     Dosage: 20 MG, QD
     Route: 048
     Dates: start: 20150501
  3. JANUVIA [Concomitant]
     Active Substance: SITAGLIPTIN PHOSPHATE
     Indication: DIABETES MELLITUS
     Dosage: 100 MG, QD
     Route: 048
     Dates: start: 20150507
  4. CYCLOPHOSPHAMIDE MONOHYDRATE [Concomitant]
     Active Substance: CYCLOPHOSPHAMIDE
     Dosage: UNK
     Route: 041
     Dates: start: 20150703, end: 20150703
  5. PREDONINE [Concomitant]
     Active Substance: PREDNISOLONE\PREDNISOLONE ACETATE\PREDNISOLONE SODIUM SUCCINATE
     Dosage: 30 UNK, UNK
     Route: 048
     Dates: start: 20150704, end: 20150707
  6. MAGLAX [Concomitant]
     Active Substance: MAGNESIUM OXIDE
     Indication: CONSTIPATION
     Dosage: 660 MG, TID
     Route: 048
     Dates: start: 20150522
  7. RITUXAN [Concomitant]
     Active Substance: RITUXIMAB
     Dosage: UNK
     Route: 041
     Dates: start: 20150703, end: 20150703
  8. CYCLOPHOSPHAMIDE MONOHYDRATE [Concomitant]
     Active Substance: CYCLOPHOSPHAMIDE
     Indication: LYMPHOMA
     Dosage: UNK
     Route: 041
     Dates: start: 20150611, end: 20150611
  9. THERARUBICIN [Concomitant]
     Active Substance: PIRARUBICIN HYDROCHLORIDE
     Dosage: UNK
     Route: 041
     Dates: start: 20150611, end: 20150611
  10. LANSOPRAZOLE. [Concomitant]
     Active Substance: LANSOPRAZOLE
     Dosage: 15 MG, QD
     Route: 048
     Dates: start: 20150501
  11. RITUXAN [Concomitant]
     Active Substance: RITUXIMAB
     Indication: LYMPHOMA
     Dosage: UNK
     Route: 041
     Dates: start: 20150611, end: 20150611
  12. ONCOVIN [Concomitant]
     Active Substance: VINCRISTINE SULFATE
     Dosage: UNK
     Route: 041
     Dates: start: 20150703, end: 20150703
  13. SULFAMETHOXAZOLE AND TRIMETHOPRIM [Concomitant]
     Active Substance: SULFAMETHOXAZOLE\TRIMETHOPRIM
     Dosage: UNK, QD
     Route: 048
     Dates: start: 20150509
  14. ONCOVIN [Concomitant]
     Active Substance: VINCRISTINE SULFATE
     Indication: LYMPHOMA
     Dosage: 1.5 MG, UNK
     Route: 041
     Dates: start: 20150522
  15. BONOTEO [Concomitant]
     Active Substance: MINODRONIC ACID
     Dosage: 50 MG, 1X/MONTH
     Route: 048
     Dates: start: 20150601
  16. G-LASTA [Suspect]
     Active Substance: PEGFILGRASTIM
     Indication: NEUTROPENIA
     Dosage: UNK
     Route: 065
     Dates: start: 20150614, end: 20150614
  17. PREDONINE [Concomitant]
     Active Substance: PREDNISOLONE\PREDNISOLONE ACETATE\PREDNISOLONE SODIUM SUCCINATE
     Indication: LYMPHOMA
     Dosage: UNK
     Route: 048
     Dates: start: 20150611, end: 20150611
  18. VALTREX [Concomitant]
     Active Substance: VALACYCLOVIR HYDROCHLORIDE
     Dosage: 500 MG, QD
     Route: 048
     Dates: start: 20150507
  19. ONCOVIN [Concomitant]
     Active Substance: VINCRISTINE SULFATE
     Dosage: UNK
     Route: 041
     Dates: start: 20150611, end: 20150611
  20. THERARUBICIN [Concomitant]
     Active Substance: PIRARUBICIN HYDROCHLORIDE
     Indication: LYMPHOMA
     Dosage: 60 MG, UNK
     Route: 041
     Dates: start: 20150522
  21. THERARUBICIN [Concomitant]
     Active Substance: PIRARUBICIN HYDROCHLORIDE
     Dosage: UNK
     Route: 041
     Dates: start: 20150703, end: 20150703
  22. PREDONINE [Concomitant]
     Active Substance: PREDNISOLONE\PREDNISOLONE ACETATE\PREDNISOLONE SODIUM SUCCINATE
     Dosage: UNK
     Route: 048
     Dates: start: 20150703, end: 20150703

REACTIONS (1)
  - Erythema multiforme [Recovered/Resolved]

NARRATIVE: CASE EVENT DATE: 20150711
